FAERS Safety Report 8347456-X (Version None)
Quarter: 2012Q2

REPORT INFORMATION
  Report Type: 
  Country: None (occurrence: None)
  Receive Date: 20120509
  Receipt Date: 20120424
  Transmission Date: 20120825
  Serious: Yes (Other)
  Sender: FDA-Public Use
  Company Number: US-ROCHE-1063090

PATIENT
  Age: 17 Year
  Sex: Male

DRUGS (2)
  1. AVASTIN [Suspect]
     Indication: EPENDYMOMA
  2. IRINOTECAN HCL [Suspect]
     Indication: EPENDYMOMA
     Dosage: 125 MG/M2 - 250 MG/M2

REACTIONS (1)
  - OSTEONECROSIS [None]
